FAERS Safety Report 8303821-8 (Version None)
Quarter: 2012Q2

REPORT INFORMATION
  Report Type: 
  Country: None (occurrence: None)
  Receive Date: 20120423
  Receipt Date: 20120416
  Transmission Date: 20120825
  Serious: No
  Sender: FDA-Public Use
  Company Number: PHEH2012US002983

PATIENT
  Sex: Male

DRUGS (2)
  1. TASIGNA [Suspect]
     Indication: CHRONIC MYELOID LEUKAEMIA
     Dosage: 400 MG, BID
     Route: 048
     Dates: start: 20111123, end: 20120125
  2. TASIGNA [Suspect]
     Dosage: 200 MG, BID
     Route: 048
     Dates: start: 20120222

REACTIONS (8)
  - PRURITUS [None]
  - MYALGIA [None]
  - OROPHARYNGEAL PAIN [None]
  - DRY MOUTH [None]
  - DRUG DOSE OMISSION [None]
  - RASH [None]
  - LABELLED DRUG-FOOD INTERACTION MEDICATION ERROR [None]
  - RHINORRHOEA [None]
